FAERS Safety Report 5947553-X (Version None)
Quarter: 2008Q4

REPORT INFORMATION
  Report Type: 
  Country: None (occurrence: None)
  Receive Date: 20081110
  Receipt Date: 20081103
  Transmission Date: 20090506
  Serious: Yes (Death, Other)
  Sender: FDA-Public Use
  Company Number: PHHY2008IT26945

PATIENT
  Sex: Male

DRUGS (3)
  1. SANDIMMUNE [Suspect]
     Indication: PYODERMA GANGRENOSUM
     Dosage: 250 MG/DAY
     Route: 048
     Dates: start: 20051110, end: 20080317
  2. HUMIRA [Suspect]
     Indication: PYODERMA GANGRENOSUM
     Dosage: 40 MG CYCLIC
     Route: 058
     Dates: start: 20071001, end: 20080317
  3. DAPSONE [Concomitant]
     Dosage: 200 MG/DAY
     Dates: start: 20070301

REACTIONS (5)
  - ABASIA [None]
  - DEATH [None]
  - LUNG NEOPLASM MALIGNANT [None]
  - PAIN [None]
  - PYODERMA [None]
